FAERS Safety Report 4656792-X (Version None)
Quarter: 2005Q2

REPORT INFORMATION
  Report Type: 
  Country: None (occurrence: None)
  Receive Date: 20050506
  Receipt Date: 20050427
  Transmission Date: 20051028
  Serious: Yes (Hospitalization, Disabling)
  Sender: FDA-Public Use
  Company Number: 2005PK00458

PATIENT
  Age: 65 Year
  Sex: Female
  Weight: 80 kg

DRUGS (4)
  1. BELOC ZOK [Suspect]
     Indication: CORONARY ARTERY DISEASE
     Dosage: 95 MG DAILY PO
     Route: 048
     Dates: start: 19940101
  2. BELOC ZOK [Suspect]
     Indication: HYPERTENSION
     Dosage: 95 MG DAILY PO
     Route: 048
     Dates: start: 19940101
  3. NORVASC [Suspect]
     Indication: CORONARY ARTERY DISEASE
     Dosage: 5 MG DAILY PO
     Route: 048
     Dates: start: 19970101
  4. NORVASC [Suspect]
     Indication: HYPERTENSION
     Dosage: 5 MG DAILY PO
     Route: 048
     Dates: start: 19970101

REACTIONS (6)
  - CHOLANGITIS SCLEROSING [None]
  - DIABETES MELLITUS [None]
  - GASTRITIS EROSIVE [None]
  - HEPATIC CIRRHOSIS [None]
  - PORTAL HYPERTENSIVE GASTROPATHY [None]
  - VARICES OESOPHAGEAL [None]
